FAERS Safety Report 9282014 (Version 1)
Quarter: 2013Q2

REPORT INFORMATION
  Report Type: Spontaneous
  Country: US (occurrence: US)
  Receive Date: 20130510
  Receipt Date: 20130510
  Transmission Date: 20140414
  Serious: No
  Sender: FDA-Public Use
  Company Number: US-BIOGENIDEC-2012BI060716

PATIENT
  Age: 53 Year
  Sex: Female

DRUGS (3)
  1. AVONEX [Suspect]
     Indication: MULTIPLE SCLEROSIS
     Route: 030
     Dates: start: 19960901, end: 201209
  2. COPAXONE [Concomitant]
     Indication: MULTIPLE SCLEROSIS
     Dates: end: 201209
  3. COZAAR [Concomitant]
     Indication: TACHYCARDIA

REACTIONS (9)
  - Gait disturbance [Not Recovered/Not Resolved]
  - General symptom [Unknown]
  - Arthropathy [Not Recovered/Not Resolved]
  - Pain [Not Recovered/Not Resolved]
  - Arthritis [Not Recovered/Not Resolved]
  - Musculoskeletal pain [Not Recovered/Not Resolved]
  - Asthenia [Not Recovered/Not Resolved]
  - Muscle spasms [Unknown]
  - Arthralgia [Recovered/Resolved]
